FAERS Safety Report 20231443 (Version 5)
Quarter: 2022Q1

REPORT INFORMATION
  Report Type: Report from Study
  Country: JP (occurrence: JP)
  Receive Date: 20211227
  Receipt Date: 20220307
  Transmission Date: 20220423
  Serious: Yes (Hospitalization, Other)
  Sender: FDA-Public Use
  Company Number: JP-NOVARTISPH-NVSJ2020JP010935

PATIENT
  Age: 9 Year
  Sex: Female
  Weight: 39.1 kg

DRUGS (45)
  1. ILARIS [Suspect]
     Active Substance: CANAKINUMAB
     Indication: Still^s disease
     Dosage: 150 MG
     Route: 058
     Dates: start: 20191111
  2. ILARIS [Suspect]
     Active Substance: CANAKINUMAB
     Dosage: 150 MG
     Route: 058
     Dates: start: 20191209
  3. ILARIS [Suspect]
     Active Substance: CANAKINUMAB
     Dosage: 150 MG
     Route: 058
     Dates: start: 20200106
  4. ILARIS [Suspect]
     Active Substance: CANAKINUMAB
     Dosage: 165 MG
     Route: 058
     Dates: start: 20200204
  5. ILARIS [Suspect]
     Active Substance: CANAKINUMAB
     Dosage: 165 MG
     Route: 058
     Dates: start: 20200303
  6. ILARIS [Suspect]
     Active Substance: CANAKINUMAB
     Dosage: 165 MG
     Route: 058
     Dates: start: 20200402
  7. ILARIS [Suspect]
     Active Substance: CANAKINUMAB
     Dosage: 165 MG
     Route: 058
     Dates: start: 20200501
  8. ILARIS [Suspect]
     Active Substance: CANAKINUMAB
     Dosage: 165 MG
     Route: 058
     Dates: start: 20200528
  9. ILARIS [Suspect]
     Active Substance: CANAKINUMAB
     Dosage: 165 MG
     Route: 058
     Dates: start: 20200625
  10. ILARIS [Suspect]
     Active Substance: CANAKINUMAB
     Dosage: 165 MG
     Route: 058
     Dates: start: 20200727
  11. ILARIS [Suspect]
     Active Substance: CANAKINUMAB
     Dosage: 150 MG
     Route: 058
     Dates: start: 20200824
  12. ILARIS [Suspect]
     Active Substance: CANAKINUMAB
     Dosage: 150 MG
     Route: 058
     Dates: start: 20200918
  13. ILARIS [Suspect]
     Active Substance: CANAKINUMAB
     Dosage: 150 MG
     Route: 058
     Dates: start: 20201016
  14. ILARIS [Suspect]
     Active Substance: CANAKINUMAB
     Dosage: 150 MG
     Route: 058
     Dates: start: 20201112
  15. ILARIS [Suspect]
     Active Substance: CANAKINUMAB
     Dosage: 150 MG
     Route: 058
     Dates: start: 20201211
  16. ILARIS [Suspect]
     Active Substance: CANAKINUMAB
     Dosage: 150 MG
     Route: 058
     Dates: start: 20210108
  17. ILARIS [Suspect]
     Active Substance: CANAKINUMAB
     Dosage: 150 MG
     Route: 058
     Dates: start: 20210205
  18. ILARIS [Suspect]
     Active Substance: CANAKINUMAB
     Dosage: 150 MG
     Route: 058
     Dates: start: 20210305
  19. ILARIS [Suspect]
     Active Substance: CANAKINUMAB
     Dosage: 150 MG
     Route: 058
     Dates: start: 20210402
  20. ILARIS [Suspect]
     Active Substance: CANAKINUMAB
     Dosage: 150 MG
     Route: 058
     Dates: start: 20210430
  21. ILARIS [Suspect]
     Active Substance: CANAKINUMAB
     Dosage: 150 MG
     Route: 058
     Dates: start: 20210527
  22. ILARIS [Suspect]
     Active Substance: CANAKINUMAB
     Dosage: 150 MG
     Route: 058
     Dates: start: 20210707
  23. ILARIS [Suspect]
     Active Substance: CANAKINUMAB
     Dosage: 150 MG
     Route: 058
     Dates: start: 20210804
  24. ILARIS [Suspect]
     Active Substance: CANAKINUMAB
     Dosage: 150 MG
     Route: 058
     Dates: start: 20210830
  25. ILARIS [Suspect]
     Active Substance: CANAKINUMAB
     Dosage: 150 MG
     Route: 058
     Dates: start: 20210924
  26. ILARIS [Suspect]
     Active Substance: CANAKINUMAB
     Dosage: 150 MG
     Route: 058
     Dates: start: 20211025
  27. ILARIS [Suspect]
     Active Substance: CANAKINUMAB
     Dosage: 150 MG
     Route: 058
     Dates: start: 20211119
  28. ILARIS [Suspect]
     Active Substance: CANAKINUMAB
     Dosage: 150 MG
     Route: 058
     Dates: start: 20211217
  29. PREDONINE [Concomitant]
     Active Substance: PREDNISOLONE
     Indication: Still^s disease
     Dosage: 5 MG
     Route: 048
     Dates: start: 20191127, end: 20191209
  30. PREDNISOLONE [Concomitant]
     Active Substance: PREDNISOLONE
     Indication: Still^s disease
     Dosage: 4 MG
     Route: 048
     Dates: start: 20191210, end: 20200106
  31. PREDNISOLONE [Concomitant]
     Active Substance: PREDNISOLONE
     Dosage: 3 MG
     Route: 048
     Dates: start: 20200107, end: 20200115
  32. PREDNISOLONE [Concomitant]
     Active Substance: PREDNISOLONE
     Dosage: 30 MG
     Route: 048
     Dates: start: 20200116, end: 20200131
  33. PREDNISOLONE [Concomitant]
     Active Substance: PREDNISOLONE
     Dosage: 20 MG
     Route: 048
     Dates: start: 20200201, end: 20200211
  34. PREDNISOLONE [Concomitant]
     Active Substance: PREDNISOLONE
     Dosage: 15 MG
     Route: 048
     Dates: start: 20200212, end: 20200226
  35. PREDNISOLONE [Concomitant]
     Active Substance: PREDNISOLONE
     Dosage: 10 MG
     Route: 048
     Dates: start: 20200227, end: 20200310
  36. PREDNISOLONE [Concomitant]
     Active Substance: PREDNISOLONE
     Dosage: 7.5 MG
     Route: 048
     Dates: start: 20200311, end: 20200325
  37. PREDNISOLONE [Concomitant]
     Active Substance: PREDNISOLONE
     Dosage: 5 MG
     Route: 048
     Dates: start: 20200326, end: 20200402
  38. PREDNISOLONE [Concomitant]
     Active Substance: PREDNISOLONE
     Dosage: 4 MG
     Route: 048
     Dates: start: 20200404, end: 20200625
  39. PREDNISOLONE [Concomitant]
     Active Substance: PREDNISOLONE
     Dosage: 3 MG
     Route: 048
     Dates: start: 20200626, end: 20210305
  40. PREDNISOLONE [Concomitant]
     Active Substance: PREDNISOLONE
     Dosage: 2 MG
     Route: 048
     Dates: start: 20210306, end: 20210402
  41. PREDNISOLONE [Concomitant]
     Active Substance: PREDNISOLONE
     Dosage: 1 MG
     Route: 048
     Dates: start: 20210403, end: 20210510
  42. METHOTREXATE [Concomitant]
     Active Substance: METHOTREXATE
     Indication: Still^s disease
     Dosage: 4 MG
     Route: 048
     Dates: start: 20200208, end: 20210626
  43. TACROLIMUS [Concomitant]
     Active Substance: TACROLIMUS
     Indication: Still^s disease
     Dosage: 2 MG
     Route: 048
     Dates: start: 20200929, end: 20201112
  44. TACROLIMUS [Concomitant]
     Active Substance: TACROLIMUS
     Dosage: 3 MG
     Route: 048
     Dates: start: 20201113, end: 20210527
  45. TACROLIMUS [Concomitant]
     Active Substance: TACROLIMUS
     Dosage: 2 MG
     Route: 048
     Dates: start: 20210528, end: 20210629

REACTIONS (8)
  - Still^s disease [Recovered/Resolved]
  - Condition aggravated [Recovered/Resolved]
  - Epstein-Barr virus infection [Recovering/Resolving]
  - Malaise [Recovering/Resolving]
  - Liver disorder [Recovering/Resolving]
  - Pyrexia [Recovering/Resolving]
  - Still^s disease [Recovering/Resolving]
  - Condition aggravated [Recovering/Resolving]

NARRATIVE: CASE EVENT DATE: 20200120
